FAERS Safety Report 11332410 (Version 1)
Quarter: 2015Q3

REPORT INFORMATION
  Report Type: Spontaneous
  Country: US (occurrence: US)
  Receive Date: 20150803
  Receipt Date: 20150803
  Transmission Date: 20151125
  Serious: No
  Sender: FDA-Public Use
  Company Number: US-ELI_LILLY_AND_COMPANY-US200810000243

PATIENT
  Age: 55 Year
  Sex: Female

DRUGS (20)
  1. ZYPREXA [Suspect]
     Active Substance: OLANZAPINE
     Dosage: 30 U, DAILY (1/D)
     Dates: start: 20080728
  2. DEPAKOTE [Concomitant]
     Active Substance: DIVALPROEX SODIUM
     Dosage: 500 MG, 2/D
     Dates: end: 200709
  3. DEPAKOTE [Concomitant]
     Active Substance: DIVALPROEX SODIUM
     Dosage: 500 MG, 2/D
     Dates: start: 200806
  4. GABAPENTIN. [Concomitant]
     Active Substance: GABAPENTIN
     Dates: end: 200709
  5. HYDROCHLOROTHIAZIDE. [Concomitant]
     Active Substance: HYDROCHLOROTHIAZIDE
     Dosage: UNK, UNK
     Dates: end: 200709
  6. METFORMIN [Concomitant]
     Active Substance: METFORMIN HYDROCHLORIDE
     Dates: start: 200806
  7. LAMICTAL [Concomitant]
     Active Substance: LAMOTRIGINE
     Dates: end: 200709
  8. ZOLOFT [Concomitant]
     Active Substance: SERTRALINE HYDROCHLORIDE
     Dosage: 200 MG, UNK
     Dates: start: 200806
  9. GABAPENTIN. [Concomitant]
     Active Substance: GABAPENTIN
     Dates: start: 200806
  10. ZOLOFT [Concomitant]
     Active Substance: SERTRALINE HYDROCHLORIDE
     Dosage: 200 MG, UNK
     Dates: end: 200709
  11. COGENTIN [Concomitant]
     Active Substance: BENZTROPINE MESYLATE
     Dates: start: 200806
  12. LAMICTAL [Concomitant]
     Active Substance: LAMOTRIGINE
     Dosage: UNK, UNK
     Dates: start: 20080820
  13. RISPERIDONE. [Concomitant]
     Active Substance: RISPERIDONE
     Dates: end: 200709
  14. ZYPREXA [Suspect]
     Active Substance: OLANZAPINE
     Dosage: 15 U, DAILY (1/D)
     Dates: start: 1993
  15. SYNTHROID [Concomitant]
     Active Substance: LEVOTHYROXINE SODIUM
     Dosage: 100 UG, UNK
     Dates: start: 200806
  16. HYDROCHLOROTHIAZIDE. [Concomitant]
     Active Substance: HYDROCHLOROTHIAZIDE
  17. RISPERIDONE. [Concomitant]
     Active Substance: RISPERIDONE
     Dates: start: 200806
  18. SYNTHROID [Concomitant]
     Active Substance: LEVOTHYROXINE SODIUM
     Dosage: 100 UG, UNK
     Dates: end: 200709
  19. METFORMIN [Concomitant]
     Active Substance: METFORMIN HYDROCHLORIDE
     Dosage: UNK, UNK
     Dates: end: 200709
  20. COGENTIN [Concomitant]
     Active Substance: BENZTROPINE MESYLATE
     Dosage: UNK, UNK
     Dates: end: 200709

REACTIONS (15)
  - Musculoskeletal stiffness [Unknown]
  - Flat affect [Not Recovered/Not Resolved]
  - Balance disorder [Not Recovered/Not Resolved]
  - Tardive dyskinesia [Not Recovered/Not Resolved]
  - Cognitive disorder [Not Recovered/Not Resolved]
  - Psychotic disorder [Not Recovered/Not Resolved]
  - Gait disturbance [Not Recovered/Not Resolved]
  - Suicidal ideation [Not Recovered/Not Resolved]
  - Prescribed overdose [Unknown]
  - Tremor [Not Recovered/Not Resolved]
  - Asthenia [Not Recovered/Not Resolved]
  - Coordination abnormal [Unknown]
  - Paranoia [Not Recovered/Not Resolved]
  - Hallucination, auditory [Not Recovered/Not Resolved]
  - Depressed mood [Not Recovered/Not Resolved]

NARRATIVE: CASE EVENT DATE: 1993
